FAERS Safety Report 26083488 (Version 4)
Quarter: 2025Q4

REPORT INFORMATION
  Report Type: Spontaneous
  Country: EU (occurrence: EU)
  Receive Date: 20251124
  Receipt Date: 20251211
  Transmission Date: 20260119
  Serious: Yes (Life-Threatening, Hospitalization, Other)
  Sender: MYLAN
  Company Number: EU-ROCHE-10000426301

PATIENT
  Age: 60 Year
  Sex: Male

DRUGS (20)
  1. METHOTREXATE [Suspect]
     Active Substance: METHOTREXATE
     Indication: Acute lymphocytic leukaemia
     Dosage: DIAGNOSTIC AND PRE-PHASE THERAPY D5  (STRENGTH: 2.5 MG / 1 EA)
  2. METHOTREXATE [Suspect]
     Active Substance: METHOTREXATE
     Indication: B-cell type acute leukaemia
     Dosage: QD, PRE-PHASE THERAPY: D5; INDUCTION PHASE I: D13; INDUCTION PHASE II: D21, 28, 35
  3. METHOTREXATE [Suspect]
     Active Substance: METHOTREXATE
     Dosage: REMISSION-INDUCTION PHASE I D13
  4. METHOTREXATE [Suspect]
     Active Substance: METHOTREXATE
     Dosage: UNK, QD, CONSOLIDATION CHEMOTHERAPY: HDMTX D2, 16
  5. CYTARABINE [Suspect]
     Active Substance: CYTARABINE
     Indication: Acute lymphocytic leukaemia
     Dosage: REMISSION-INDUCTION PHASE II D21, 28, 35
  6. CYTARABINE [Suspect]
     Active Substance: CYTARABINE
     Indication: B-cell type acute leukaemia
     Dosage: QD, INDUCTION PHASE I: D13; INDUCTION PHASE II: D21, 28, 35
  7. RITUXIMAB [Suspect]
     Active Substance: RITUXIMAB
     Indication: Acute lymphocytic leukaemia
     Dosage: QD, INDUCTION PHASE I: D6; INDUCTION PHASE II: D20; CONSOLIDATION CHEMOTHERAPY: D1
  8. RITUXIMAB [Suspect]
     Active Substance: RITUXIMAB
     Indication: B-cell type acute leukaemia
     Dosage: CONSOLIDATION CHEMOTHERAPY D1
  9. RITUXIMAB [Suspect]
     Active Substance: RITUXIMAB
     Dosage: REMISSION-INDUCTION PHASE I D6
  10. CYCLOPHOSPHAMIDE [Suspect]
     Active Substance: CYCLOPHOSPHAMIDE
     Indication: Acute lymphocytic leukaemia
     Dosage: REMISSION INDUCTION PHASE II D21, 35
  11. CYCLOPHOSPHAMIDE [Suspect]
     Active Substance: CYCLOPHOSPHAMIDE
     Indication: B-cell type acute leukaemia
     Dosage: QD, PRE-PHASE THERAPY: D3-5; INDUCTION PHASE II: D21, 35
  12. VINCRISTINE [Suspect]
     Active Substance: VINCRISTINE
     Indication: Acute lymphocytic leukaemia
     Dosage: UNK, QD , INDUCTION PHASE I: D7, 14
  13. VINCRISTINE [Suspect]
     Active Substance: VINCRISTINE
     Indication: B-cell type acute leukaemia
  14. IDARUBICIN [Suspect]
     Active Substance: IDARUBICIN
     Indication: Acute lymphocytic leukaemia
     Dosage: UNK, QD, INDUCTION PHASE I: D7, 8, 14, 15
  15. IDARUBICIN [Suspect]
     Active Substance: IDARUBICIN
     Indication: B-cell type acute leukaemia
  16. DEXAMETHASONE [Suspect]
     Active Substance: DEXAMETHASONE
     Indication: Acute lymphocytic leukaemia
     Dosage: QD, INDUCTION PHASE I: D13; INDUCTION PHASE II: D21, 28, 35
  17. DEXAMETHASONE [Suspect]
     Active Substance: DEXAMETHASONE
     Indication: B-cell type acute leukaemia
     Dosage: QD, PRE-PHASE THERAPY: D1-5; INDUCTION PHASE I: D7, 8, 14-17; INDUCTION PHASE II: D7, 8,
  18. DEXAMETHASONE [Suspect]
     Active Substance: DEXAMETHASONE
     Dosage: REMISSION-INDUCTION PHASE II D7, 8, 14-17, D21, 28, 35
  19. PEG/L-ASPARAGINASE [Suspect]
     Active Substance: PEGASPARGASE
     Indication: Acute lymphocytic leukaemia
     Dosage: UNK, QD,CONSOLIDATION CHEMOTHERAPY: D3, 17
  20. PEG/L-ASPARAGINASE [Suspect]
     Active Substance: PEGASPARGASE
     Indication: B-cell type acute leukaemia

REACTIONS (15)
  - Anaphylactic reaction [Unknown]
  - Seizure [Unknown]
  - Septic encephalopathy [Unknown]
  - Haematological infection [Unknown]
  - Sepsis [Unknown]
  - Pneumonia [Unknown]
  - Rash [Unknown]
  - Septic shock [Unknown]
  - Thrombocytopenia [Unknown]
  - Anaemia [Unknown]
  - Subdural haematoma [Unknown]
  - Hyperbilirubinaemia [Unknown]
  - Lipase increased [Unknown]
  - Antithrombin III deficiency [Unknown]
  - Supraventricular tachycardia [Unknown]
